FAERS Safety Report 8558185-1 (Version None)
Quarter: 2012Q3

REPORT INFORMATION
  Report Type: 
  Country: None (occurrence: None)
  Receive Date: 20120727
  Receipt Date: 20120727
  Transmission Date: 20120928
  Serious: Yes (Other)
  Sender: FDA-Public Use
  Company Number: None

PATIENT
  Sex: Female

DRUGS (1)
  1. OXYCODONE AND ACETAMINOPHEN [Suspect]
     Indication: MUSCLE SPASMS
     Dosage: 5-325MG, 1-2 TABLET AS NEED, OCCLUSIVE
     Route: 046

REACTIONS (2)
  - PRURITUS GENERALISED [None]
  - VOMITING [None]
